FAERS Safety Report 25578528 (Version 1)
Quarter: 2025Q3

REPORT INFORMATION
  Report Type: Spontaneous
  Country: US (occurrence: None)
  Receive Date: 20250717
  Receipt Date: 20250717
  Transmission Date: 20251021
  Serious: Yes (Hospitalization, Other)
  Sender: FDA-CTU
  Company Number: None

PATIENT
  Age: 41 Year
  Sex: Female

DRUGS (2)
  1. NICODERM CQ [Suspect]
     Active Substance: NICOTINE
     Indication: Smoking cessation therapy
     Dosage: FREQUENCY : DAILY;?
     Route: 062
     Dates: start: 20250410, end: 20250605
  2. HABITROL [Suspect]
     Active Substance: NICOTINE
     Indication: Smoking cessation therapy
     Route: 048
     Dates: start: 20250410, end: 20250606

REACTIONS (2)
  - Chest discomfort [None]
  - Angiogram abnormal [None]

NARRATIVE: CASE EVENT DATE: 20250715
